FAERS Safety Report 25268839 (Version 1)
Quarter: 2025Q2

REPORT INFORMATION
  Report Type: Spontaneous
  Country: US (occurrence: None)
  Receive Date: 20250504
  Receipt Date: 20250504
  Transmission Date: 20250717
  Serious: No
  Sender: FDA-CTU
  Company Number: None

PATIENT
  Age: 32 Year
  Sex: Female
  Weight: 122.4 kg

DRUGS (14)
  1. ZANAFLEX [Suspect]
     Active Substance: TIZANIDINE HYDROCHLORIDE
     Indication: Pain
     Dosage: OTHER QUANTITY : 21 TABLET(S);?FREQUENCY : EVERY 6 HOURS;?
     Route: 048
  2. ACETAMINOPHEN\HYDROCODONE [Concomitant]
     Active Substance: ACETAMINOPHEN\HYDROCODONE
  3. LYRICA [Concomitant]
     Active Substance: PREGABALIN
  4. ZANAFLEX [Concomitant]
     Active Substance: TIZANIDINE HYDROCHLORIDE
  5. PROTONIX [Concomitant]
     Active Substance: PANTOPRAZOLE SODIUM
  6. ZOFRAN [Concomitant]
     Active Substance: ONDANSETRON HYDROCHLORIDE
  7. Calcitriol Vit d 50,000 IU [Concomitant]
  8. ZOLOFT [Concomitant]
     Active Substance: SERTRALINE HYDROCHLORIDE
  9. Qelbree Lithium [Concomitant]
  10. Butalbital/ acetaminophen/caffeine [Concomitant]
  11. TRAZODONE [Concomitant]
     Active Substance: TRAZODONE HYDROCHLORIDE
  12. HYDROXYZINE [Concomitant]
     Active Substance: HYDROXYZINE HYDROCHLORIDE
  13. VOLTAREN [Concomitant]
     Active Substance: DICLOFENAC SODIUM
  14. Calcium B 12 injection [Concomitant]

REACTIONS (14)
  - Tinnitus [None]
  - Ear pain [None]
  - Ear discomfort [None]
  - Hypoacusis [None]
  - Vision blurred [None]
  - Fatigue [None]
  - Dizziness [None]
  - Dry mouth [None]
  - Middle insomnia [None]
  - Incontinence [None]
  - Hangover [None]
  - Nausea [None]
  - Headache [None]
  - Hot flush [None]

NARRATIVE: CASE EVENT DATE: 20250503
